FAERS Safety Report 9546781 (Version 1)
Quarter: 2013Q3

REPORT INFORMATION
  Report Type: Spontaneous
  Country: NL (occurrence: NL)
  Receive Date: 20130924
  Receipt Date: 20130924
  Transmission Date: 20140515
  Serious: Yes (Death)
  Sender: FDA-Public Use
  Company Number: NL-AMGEN-NLDSP2013066130

PATIENT
  Age: 77 Year
  Sex: Female

DRUGS (3)
  1. XGEVA [Suspect]
     Indication: BONE DISORDER
     Dosage: UNK UNK, Q4WK
     Route: 065
     Dates: start: 20120327
  2. CALCI CHEW D3 [Concomitant]
     Dosage: 500 MG/400IE, UNK
  3. TAMOXIFEN [Concomitant]
     Dosage: 20 MG, UNK
     Route: 048

REACTIONS (1)
  - Death [Fatal]
